FAERS Safety Report 6947346-0 (Version None)
Quarter: 2010Q3

REPORT INFORMATION
  Report Type: 
  Country: None (occurrence: None)
  Receive Date: 20100827
  Receipt Date: 20090831
  Transmission Date: 20110219
  Serious: No
  Sender: FDA-Public Use
  Company Number: US-ABBOTT-09P-163-0595566-00

PATIENT
  Sex: Female
  Weight: 47.67 kg

DRUGS (8)
  1. NIASPAN [Suspect]
     Indication: BLOOD TRIGLYCERIDES INCREASED
     Dosage: 1 PILL TAKEN ON SATURDAY ONLY, SAMPLES RECEIVED FROM MD OFFICE.
     Route: 048
     Dates: start: 20090829, end: 20090830
  2. NIASPAN [Suspect]
     Indication: HIGH DENSITY LIPOPROTEIN INCREASED
  3. AMITIZA [Concomitant]
     Indication: GASTROINTESTINAL DISORDER
  4. CELEBREX [Concomitant]
     Indication: ARTHRITIS
  5. LEVOTHYROXINE [Concomitant]
     Indication: THYROID DISORDER
  6. PANTOPRAZOLE [Concomitant]
     Indication: DYSPEPSIA
  7. FORTEO [Concomitant]
     Indication: BONE DENSITY ABNORMAL
  8. LUNESTA [Concomitant]
     Indication: SLEEP DISORDER THERAPY
     Route: 048

REACTIONS (3)
  - ABDOMINAL DISCOMFORT [None]
  - INCORRECT DRUG ADMINISTRATION DURATION [None]
  - PALPITATIONS [None]
